FAERS Safety Report 24407445 (Version 1)
Quarter: 2024Q4

REPORT INFORMATION
  Report Type: Spontaneous
  Country: DE (occurrence: DE)
  Receive Date: 20241007
  Receipt Date: 20241007
  Transmission Date: 20250115
  Serious: Yes (Hospitalization, Other)
  Sender: ALEXION PHARMACEUTICALS
  Company Number: DE-DCGMA-24203904

PATIENT
  Age: 65 Year
  Weight: 52 kg

DRUGS (1)
  1. TAGRISSO [Suspect]
     Active Substance: OSIMERTINIB
     Indication: Non-small cell lung cancer
     Dosage: DAILY DOSE: 80 MG EVERY 1 DAY

REACTIONS (1)
  - Retinal detachment [Not Recovered/Not Resolved]
